FAERS Safety Report 10205970 (Version 1)
Quarter: 2014Q2

REPORT INFORMATION
  Report Type: Spontaneous
  Country: US (occurrence: None)
  Receive Date: 20140527
  Receipt Date: 20140527
  Transmission Date: 20141212
  Serious: Yes (Other)
  Sender: FDA-Public Use
  Company Number: None

PATIENT
  Age: 16 Year
  Sex: Female

DRUGS (2)
  1. SERTRALINE (ZOLOFT) 100 MG LUPIN PHARMACE [Suspect]
     Indication: MOOD ALTERED
     Dosage: 1 TABLET BY MOUTH EVERYDAY, ONCE DAILY, TAKEN BY MOUTH
     Route: 048
  2. SERTRALINE (ZOLOFT) 100 MG LUPIN PHARMACE [Suspect]
     Indication: ANXIETY
     Dosage: 1 TABLET BY MOUTH EVERYDAY, ONCE DAILY, TAKEN BY MOUTH
     Route: 048

REACTIONS (3)
  - Mood altered [None]
  - Hostility [None]
  - Anger [None]
